FAERS Safety Report 5226996-6 (Version None)
Quarter: 2007Q1

REPORT INFORMATION
  Report Type: 
  Country: None (occurrence: None)
  Receive Date: 20070202
  Receipt Date: 20070125
  Transmission Date: 20070707
  Serious: Yes (Hospitalization)
  Sender: FDA-Public Use
  Company Number: GB-BRISTOL-MYERS SQUIBB COMPANY-13663331

PATIENT
  Age: 64 Year
  Sex: Male

DRUGS (4)
  1. CETUXIMAB [Suspect]
     Indication: COLORECTAL CANCER
     Dates: start: 20061208, end: 20061208
  2. OXALIPLATIN [Suspect]
     Indication: COLORECTAL CANCER
     Dates: start: 20061201, end: 20061201
  3. FLUOROURACIL [Suspect]
     Indication: COLORECTAL CANCER
     Dates: start: 20061201, end: 20061201
  4. CIPROFLOXACIN HCL [Concomitant]
     Route: 048
     Dates: start: 20061204, end: 20061217

REACTIONS (3)
  - DEEP VEIN THROMBOSIS [None]
  - DYSPNOEA [None]
  - PULMONARY EMBOLISM [None]
